FAERS Safety Report 4537559-X (Version None)
Quarter: 2004Q4

REPORT INFORMATION
  Report Type: 
  Country: None (occurrence: None)
  Receive Date: 20041216
  Receipt Date: 20040407
  Transmission Date: 20050328
  Serious: Yes (Life-Threatening, Hospitalization)
  Sender: FDA-Public Use
  Company Number: HQWYE395308APR04

PATIENT
  Age: 31 Year
  Sex: Female
  Weight: 70 kg

DRUGS (7)
  1. EFFEXOR XR [Suspect]
     Dosage: 225 MG 1X PER 1 DAY, ORAL
     Route: 048
     Dates: start: 20030501
  2. ADVAIR (FLUTICASONE PROPIONATE/SALMETEROL XINAFOATE) [Concomitant]
  3. DEMEROL [Concomitant]
  4. ATIVAN [Concomitant]
  5. URSODIOL (URSODEOXYCHOLIC ACID) [Concomitant]
  6. PEPCID [Concomitant]
  7. DECADRAN (DEXAMETHASONE SODIUM PHOSPHATE) [Concomitant]

REACTIONS (5)
  - CHILLS [None]
  - HEADACHE [None]
  - HEPATITIS CHOLESTATIC [None]
  - LEUKOCYTOSIS [None]
  - PYREXIA [None]
